FAERS Safety Report 14619616 (Version 1)
Quarter: 2018Q1

REPORT INFORMATION
  Report Type: Spontaneous
  Country: IT (occurrence: IT)
  Receive Date: 20180309
  Receipt Date: 20180309
  Transmission Date: 20180509
  Serious: Yes (Hospitalization)
  Sender: FDA-Public Use
  Company Number: IT-TEVA-2018-IT-864089

PATIENT
  Age: 14 Year
  Sex: Male

DRUGS (25)
  1. FLUDARABINE PHOSPHATE. [Suspect]
     Active Substance: FLUDARABINE PHOSPHATE
     Indication: ALLOGENIC BONE MARROW TRANSPLANTATION THERAPY
     Dosage: 45 MILLIGRAM DAILY;
     Route: 042
     Dates: start: 20170523, end: 20170526
  2. FUROSEMIDE. [Concomitant]
     Active Substance: FUROSEMIDE
     Dosage: 80 MILLIGRAM DAILY;
     Route: 042
     Dates: start: 20170523, end: 20170626
  3. UROMITEXAN [Concomitant]
     Active Substance: MESNA
     Dosage: 150 MILLIGRAM DAILY;
     Route: 065
     Dates: start: 20170523, end: 20170526
  4. THYMOGLOBULINE [Suspect]
     Active Substance: LAPINE T-LYMPHOCYTE IMMUNE GLOBULIN
     Indication: ALLOGENIC BONE MARROW TRANSPLANTATION THERAPY
     Dosage: 150 MILLIGRAM DAILY;
     Route: 042
     Dates: start: 20170523, end: 20170526
  5. ANTRA [Concomitant]
     Active Substance: OMEPRAZOLE
     Dosage: 40 MILLIGRAM DAILY;
     Route: 065
     Dates: start: 20170520, end: 20170529
  6. METHOTREXATE. [Concomitant]
     Active Substance: METHOTREXATE
     Route: 065
     Dates: start: 20170530, end: 20170604
  7. DIAMINOCILLINA [Concomitant]
     Active Substance: PENICILLIN G BENZATHINE
     Route: 065
     Dates: start: 20170522
  8. DIFLUCAN [Concomitant]
     Active Substance: FLUCONAZOLE
     Dosage: 500 MILLIGRAM DAILY;
     Route: 042
     Dates: start: 20170520, end: 20170522
  9. CLINDAMYCIN. [Concomitant]
     Active Substance: CLINDAMYCIN
     Dosage: 900 MILLIGRAM DAILY;
     Route: 042
     Dates: start: 20170520, end: 20170617
  10. ENDOXAN BAXTER [Suspect]
     Active Substance: CYCLOPHOSPHAMIDE
     Indication: ALLOGENIC BONE MARROW TRANSPLANTATION THERAPY
     Dosage: 450 MILLIGRAM DAILY;
     Route: 042
     Dates: start: 20170523, end: 20170526
  11. CICLOSPORIN [Concomitant]
     Active Substance: CYCLOSPORINE
     Dosage: 150 MILLIGRAM DAILY;
     Route: 065
     Dates: start: 20170527, end: 20170620
  12. ZOVIRAX [Concomitant]
     Active Substance: ACYCLOVIR
     Dosage: 1500 MILLIGRAM DAILY;
     Route: 042
     Dates: start: 20170520, end: 20170522
  13. EMEND [Concomitant]
     Active Substance: APREPITANT
     Route: 065
     Dates: start: 20170523, end: 20170525
  14. MYCOSTATIN 100.000 U.I./ML SOSPENSIONE ORALE [Concomitant]
     Dosage: 15 ML DAILY;
     Route: 065
     Dates: start: 20170520, end: 20170626
  15. TACHIPIRINA [Concomitant]
     Active Substance: ACETAMINOPHEN
     Dosage: 1 GRAM DAILY;
     Route: 065
     Dates: start: 20170523, end: 20170526
  16. FLUCONAZOLE. [Concomitant]
     Active Substance: FLUCONAZOLE
     Dosage: 500 MILLIGRAM DAILY;
     Route: 048
     Dates: start: 20170523, end: 20170531
  17. BACTRIM [Concomitant]
     Active Substance: SULFAMETHOXAZOLE\TRIMETHOPRIM
     Route: 048
     Dates: start: 20170523
  18. URBASON [Concomitant]
     Active Substance: METHYLPREDNISOLONE
     Dosage: 40 MILLIGRAM DAILY;
     Route: 065
     Dates: start: 20170523, end: 20170526
  19. URSODEOXYCHOLIC ACID [Concomitant]
     Active Substance: URSODIOL
     Dosage: 600 MILLIGRAM DAILY;
     Route: 065
     Dates: start: 20170523, end: 20170626
  20. MERREM [Concomitant]
     Active Substance: MEROPENEM
     Dosage: 3 GRAM DAILY;
     Route: 065
     Dates: start: 20170520, end: 20170617
  21. HEPARIN SODIUM. [Concomitant]
     Active Substance: HEPARIN SODIUM
     Dosage: 5000 KU DAILY;
     Route: 042
     Dates: start: 20170523, end: 20170619
  22. PALONOSETRON HYDROCHLORIDE. [Concomitant]
     Active Substance: PALONOSETRON HYDROCHLORIDE
     Route: 065
     Dates: start: 20170523
  23. ACICLOVIR SODIUM [Concomitant]
     Dosage: 1500 MILLIGRAM DAILY;
     Route: 042
     Dates: start: 20170527, end: 20170626
  24. TRIMETON [Concomitant]
     Active Substance: CHLORPHENIRAMINE MALEATE
     Dosage: 20 MILLIGRAM DAILY;
     Route: 042
     Dates: start: 20170523, end: 20170526
  25. TRIASPORIN 10 MG/ML SOLUZIONE ORALE [Concomitant]
     Dosage: 20 ML DAILY;
     Route: 048
     Dates: start: 20170520, end: 20170522

REACTIONS (4)
  - Haematuria [Recovering/Resolving]
  - Swelling [Recovering/Resolving]
  - Cystitis haemorrhagic [Recovering/Resolving]
  - Pyrexia [Recovering/Resolving]

NARRATIVE: CASE EVENT DATE: 20170602
